FAERS Safety Report 17400489 (Version 1)
Quarter: 2020Q1

REPORT INFORMATION
  Report Type: Spontaneous
  Country: US (occurrence: US)
  Receive Date: 20200208
  Receipt Date: 20200208
  Transmission Date: 20200409
  Serious: Yes (Other)
  Sender: FDA-Public Use
  Company Number: None

PATIENT
  Age: 6 Year
  Sex: Male
  Weight: 21.6 kg

DRUGS (2)
  1. MIRALAX [Suspect]
     Active Substance: POLYETHYLENE GLYCOL 3350
     Indication: CONSTIPATION
     Dosage: ?          QUANTITY:1 FULL BOTTLE;OTHER FREQUENCY:1 DAY;?
     Route: 048
     Dates: start: 20200207, end: 20200207
  2. FLINTSTONE VITAMINS [Concomitant]

REACTIONS (8)
  - Constipation [None]
  - Emotional disorder [None]
  - Psychotic disorder [None]
  - Crying [None]
  - Aggression [None]
  - Panic attack [None]
  - Dyspnoea [None]
  - Speech disorder [None]

NARRATIVE: CASE EVENT DATE: 20200208
